FAERS Safety Report 10436818 (Version 1)
Quarter: 2014Q3

REPORT INFORMATION
  Report Type: Spontaneous
  Country: US (occurrence: US)
  Receive Date: 20140908
  Receipt Date: 20140908
  Transmission Date: 20150326
  Serious: Yes (Hospitalization)
  Sender: FDA-Public Use
  Company Number: US-BRISTOL-MYERS SQUIBB COMPANY-20244059

PATIENT
  Age: 30 Year
  Sex: Female

DRUGS (6)
  1. CLOZARIL [Concomitant]
     Active Substance: CLOZAPINE
  2. DEPAKOTE [Concomitant]
     Active Substance: DIVALPROEX SODIUM
  3. ABILIFY [Suspect]
     Active Substance: ARIPIPRAZOLE
  4. SYNTHROID [Concomitant]
     Active Substance: LEVOTHYROXINE SODIUM
  5. ZYPREXA [Concomitant]
     Active Substance: OLANZAPINE
  6. WELLBUTRIN [Concomitant]
     Active Substance: BUPROPION HYDROCHLORIDE

REACTIONS (1)
  - Cough [Unknown]
